FAERS Safety Report 7829344-8 (Version None)
Quarter: 2011Q4

REPORT INFORMATION
  Report Type: 
  Country: None (occurrence: None)
  Receive Date: 20111020
  Receipt Date: 20111013
  Transmission Date: 20120403
  Serious: Yes (Hospitalization)
  Sender: FDA-Public Use
  Company Number: US-B.I. PHARMACEUTICALS,INC./RIDGEFIELD-2011-BP-18050BP

PATIENT
  Age: 77 Year
  Sex: Male
  Weight: 73.48 kg

DRUGS (21)
  1. AMLODIPINE BESYLATE [Concomitant]
     Dosage: 2.5 MG
     Route: 048
  2. LOPRESSOR [Concomitant]
  3. LISINOPRIL [Concomitant]
     Indication: HYPERTENSION
     Dosage: 5 MG
     Route: 048
  4. POTASSIUM CHLORIDE CR [Concomitant]
     Dosage: 10 MEQ
  5. METHADONE HCL [Concomitant]
     Route: 048
  6. SANDOSTATIN [Concomitant]
  7. LISINOPRIL [Concomitant]
     Dosage: 20 MG
  8. LASIX [Concomitant]
     Dosage: 80 MG
     Route: 048
  9. METOPROLOL TARTRATE [Concomitant]
     Indication: HYPERTENSION
     Dosage: 50 MG
     Route: 048
  10. ASPIRIN [Concomitant]
     Dosage: 162 MG
     Route: 048
  11. PRADAXA [Suspect]
     Indication: ATRIAL FIBRILLATION
     Dosage: 300 MG
     Route: 048
     Dates: start: 20110101, end: 20110304
  12. METOLAZONE [Concomitant]
     Dosage: 5 MG
     Route: 048
  13. PANTOPRAZOLE SODIUM [Concomitant]
     Dosage: 40 MG
     Route: 048
  14. HYDROCODONE BITARTRATE AND ACETAMINOPHEN [Concomitant]
  15. NORCO [Concomitant]
  16. FISH OIL [Concomitant]
     Dosage: 1000 NR
     Route: 048
  17. POTASSIUM CHLORIDE CR [Concomitant]
     Dosage: 8 MEQ
     Route: 048
  18. MULTIVITAMIN SENIOR FORMULA [Concomitant]
     Route: 048
  19. NITROGARD [Concomitant]
  20. RESTOR [Concomitant]
     Dosage: 20 MG
  21. NITROGLYCERIN [Concomitant]
     Indication: CHEST PAIN
     Route: 060

REACTIONS (9)
  - MELAENA [None]
  - ILL-DEFINED DISORDER [None]
  - MALAISE [None]
  - INTESTINAL MASS [None]
  - SMALL INTESTINAL HAEMORRHAGE [None]
  - HAEMATOCHEZIA [None]
  - TREMOR [None]
  - UPPER GASTROINTESTINAL HAEMORRHAGE [None]
  - DIZZINESS [None]
